FAERS Safety Report 7219166-3 (Version None)
Quarter: 2011Q1

REPORT INFORMATION
  Report Type: 
  Country: None (occurrence: None)
  Receive Date: 20110111
  Receipt Date: 20101228
  Transmission Date: 20110831
  Serious: Yes (Death, Other)
  Sender: FDA-Public Use
  Company Number: US-RANBAXY-2010RR-40939

PATIENT
  Age: 48 Year
  Sex: Male

DRUGS (5)
  1. TRAZODONE [Suspect]
     Indication: DEPRESSION
     Dosage: 50 MG, QD
     Route: 048
     Dates: start: 20100925, end: 20101121
  2. VERAPAMIL [Suspect]
     Indication: HYPERTENSION
     Dosage: UNK
  3. GABAPENTIN [Suspect]
     Indication: PAIN
     Dosage: 100 MG, TID
     Route: 048
     Dates: start: 20100925, end: 20101101
  4. BUSPIRONE [Suspect]
     Indication: ANXIETY
     Dosage: 15 MG, TID
     Route: 048
     Dates: start: 20091022, end: 20101201
  5. MIRTAZAPINE [Suspect]
     Indication: DEPRESSION
     Dosage: 15 MG, QD
     Route: 048
     Dates: start: 20091022, end: 20101201

REACTIONS (3)
  - COMPLETED SUICIDE [None]
  - ANXIETY [None]
  - DEPRESSION [None]
